FAERS Safety Report 12649472 (Version 1)
Quarter: 2016Q3

REPORT INFORMATION
  Report Type: Spontaneous
  Country: US (occurrence: US)
  Receive Date: 20160812
  Receipt Date: 20160812
  Transmission Date: 20161109
  Serious: No
  Sender: FDA-Public Use
  Company Number: GXBR2016US000828

PATIENT
  Sex: Male
  Weight: 108.84 kg

DRUGS (1)
  1. TESTOSTERONE CYPIONATE INJECTABLE [Suspect]
     Active Substance: TESTOSTERONE CYPIONATE
     Indication: BLOOD TESTOSTERONE DECREASED
     Dosage: 1 ML, UNK
     Route: 065

REACTIONS (1)
  - Skin reaction [Unknown]
